FAERS Safety Report 21048009 (Version 1)
Quarter: 2022Q3

REPORT INFORMATION
  Report Type: Report from Study
  Country: US (occurrence: US)
  Receive Date: 20220706
  Receipt Date: 20220706
  Transmission Date: 20221027
  Serious: Yes (Other)
  Sender: FDA-Public Use
  Company Number: US-SA-SAC20220623000788

PATIENT
  Age: 64 Year
  Weight: 72.1 kg

DRUGS (2)
  1. ISATUXIMAB [Suspect]
     Active Substance: ISATUXIMAB
     Indication: Plasma cell myeloma
     Dosage: 721 MG (10 MG/KG), QW CYCLE 1 DAY 1
     Route: 042
     Dates: start: 20220621, end: 20220621
  2. ISATUXIMAB [Suspect]
     Active Substance: ISATUXIMAB
     Dosage: THERAPY RESTARTED

REACTIONS (2)
  - Throat irritation [Unknown]
  - Nasal congestion [Unknown]

NARRATIVE: CASE EVENT DATE: 20220621
